FAERS Safety Report 16881005 (Version 1)
Quarter: 2019Q4

REPORT INFORMATION
  Report Type: Spontaneous
  Country: US (occurrence: US)
  Receive Date: 20191003
  Receipt Date: 20191003
  Transmission Date: 20200122
  Serious: No
  Sender: FDA-Public Use
  Company Number: None

PATIENT
  Age: 54 Year
  Sex: Female

DRUGS (16)
  1. ENBREL [Suspect]
     Active Substance: ETANERCEPT
     Indication: PSORIATIC ARTHROPATHY
     Dosage: ?          OTHER FREQUENCY:EVERY WEEK;?
     Route: 058
  2. FOLIC ACID. [Concomitant]
     Active Substance: FOLIC ACID
  3. OTEZLA [Concomitant]
     Active Substance: APREMILAST
  4. TAMOXIFEN [Concomitant]
     Active Substance: TAMOXIFEN
  5. LOSARTAN. [Concomitant]
     Active Substance: LOSARTAN
  6. FISHOIL [Concomitant]
  7. METHOTREXATE. [Concomitant]
     Active Substance: METHOTREXATE
  8. VOLTAREN [Concomitant]
     Active Substance: DICLOFENAC SODIUM
  9. CITRACAL [Concomitant]
     Active Substance: CALCIUM CITRATE
  10. VITAMINS [Concomitant]
     Active Substance: VITAMINS
  11. ACETAMIN [Concomitant]
     Active Substance: ACETAMINOPHEN
  12. ALEVE [Concomitant]
     Active Substance: NAPROXEN SODIUM
  13. BIOTIN [Concomitant]
     Active Substance: BIOTIN
  14. COSAMIN [Concomitant]
  15. PROTONIX [Concomitant]
     Active Substance: PANTOPRAZOLE SODIUM
  16. SYNVISC [Concomitant]
     Active Substance: HYLAN G-F 20

REACTIONS (4)
  - Condition aggravated [None]
  - Arthralgia [None]
  - Pain [None]
  - Pain in extremity [None]
